FAERS Safety Report 14665147 (Version 1)
Quarter: 2018Q1

REPORT INFORMATION
  Report Type: Spontaneous
  Country: US (occurrence: US)
  Receive Date: 20180320
  Receipt Date: 20180320
  Transmission Date: 20180509
  Serious: No
  Sender: FDA-Public Use
  Company Number: None

PATIENT
  Age: 67 Year
  Sex: Female
  Weight: 85.5 kg

DRUGS (15)
  1. ELMIRON [Concomitant]
     Active Substance: PENTOSAN POLYSULFATE SODIUM
  2. ALLOPURINOL. [Concomitant]
     Active Substance: ALLOPURINOL
  3. STOOL SOFTENER (DOCUSATE) [Concomitant]
     Active Substance: DOCUSATE
  4. CONTRAVE [Suspect]
     Active Substance: BUPROPION HYDROCHLORIDE\NALTREXONE HYDROCHLORIDE
     Indication: WEIGHT DECREASED
     Dosage: ?          QUANTITY:1 TABLET(S);?
     Route: 048
  5. GABAPENTEN [Concomitant]
     Active Substance: GABAPENTIN
  6. KRILL OIL [Concomitant]
     Active Substance: DIETARY SUPPLEMENT
  7. ESTRADIOL. [Concomitant]
     Active Substance: ESTRADIOL
  8. SMALL WHITE TABLET FOR JOINT ISSUE (ARTHRITIS) [Concomitant]
  9. CYTOMEL [Concomitant]
     Active Substance: LIOTHYRONINE SODIUM
  10. EZETIMIBE. [Concomitant]
     Active Substance: EZETIMIBE
  11. IRON [Concomitant]
     Active Substance: IRON
  12. SYNTHROID [Concomitant]
     Active Substance: LEVOTHYROXINE SODIUM
  13. UROGESIC BLUE [Concomitant]
     Active Substance: HYOSCYAMINE SULFATE\METHENAMINE\METHYLENE BLUE\SODIUM PHOSPHATE, MONOBASIC
  14. CQ10 [Concomitant]
     Active Substance: UBIDECARENONE
  15. VALSARTIN [Concomitant]

REACTIONS (2)
  - Paraesthesia [None]
  - Muscle disorder [None]

NARRATIVE: CASE EVENT DATE: 20170801
